FAERS Safety Report 5684196-X (Version None)
Quarter: 2008Q1

REPORT INFORMATION
  Report Type: 
  Country: None (occurrence: None)
  Receive Date: 20080327
  Receipt Date: 20080327
  Transmission Date: 20080703
  Serious: No
  Sender: FDA-Public Use
  Company Number: None

PATIENT
  Age: 26 Year
  Weight: 53.978 kg

DRUGS (2)
  1. DEPOT LUPRON [Suspect]
     Indication: ENDOMETRIOSIS
     Dosage: INJECTION 1 X PER MONTH
     Dates: start: 20061101, end: 20070101
  2. DEPOT LUPRON [Suspect]
     Indication: ENDOMETRIOSIS
     Dosage: INJECTION 1 X PER MONTH
     Dates: start: 20071101, end: 20080101

REACTIONS (5)
  - ALOPECIA [None]
  - ARTHRALGIA [None]
  - FIBROMYALGIA [None]
  - GAIT DISTURBANCE [None]
  - PAIN [None]
